FAERS Safety Report 10662066 (Version 1)
Quarter: 2014Q4

REPORT INFORMATION
  Report Type: Spontaneous
  Country: US (occurrence: None)
  Receive Date: 20141217
  Receipt Date: 20141217
  Transmission Date: 20150529
  Serious: Yes (Hospitalization)
  Sender: FDA-Public Use
  Company Number: None

PATIENT
  Age: 86 Year
  Sex: Female
  Weight: 60.33 kg

DRUGS (1)
  1. VALSARTAN. [Suspect]
     Active Substance: VALSARTAN
     Dosage: NOV. 1 + 2

REACTIONS (10)
  - Swelling face [None]
  - Mouth swelling [None]
  - Dysphagia [None]
  - Loss of consciousness [None]
  - Urticaria [None]
  - Chest pain [None]
  - Hypoaesthesia [None]
  - Speech disorder [None]
  - Product substitution issue [None]
  - Hypoaesthesia oral [None]

NARRATIVE: CASE EVENT DATE: 20141102
